FAERS Safety Report 8182305-4 (Version None)
Quarter: 2012Q1

REPORT INFORMATION
  Report Type: 
  Country: None (occurrence: None)
  Receive Date: 20120302
  Receipt Date: 20120227
  Transmission Date: 20120608
  Serious: Yes (Other)
  Sender: FDA-Public Use
  Company Number: PHHY2011DE100872

PATIENT
  Sex: Female
  Weight: 81 kg

DRUGS (16)
  1. GABAPENTIN [Concomitant]
     Indication: BACK PAIN
     Dosage: 600 MG
     Route: 048
     Dates: start: 20111001
  2. COPAXONE [Concomitant]
     Indication: MULTIPLE SCLEROSIS
     Dosage: UNK UKN, UNK
  3. AZULFIDINE [Concomitant]
     Dosage: UNK UKN, UNK
     Dates: start: 19770101
  4. GILENYA [Suspect]
     Indication: MULTIPLE SCLEROSIS
     Dosage: 1 DF, QD
     Route: 048
     Dates: start: 20100920, end: 20111027
  5. METFORMIN HCL [Concomitant]
     Dosage: 850/D
     Dates: start: 20080201
  6. LISINOPRIL [Concomitant]
     Dosage: 10/D
     Dates: start: 20090601
  7. IBUPROFEN [Concomitant]
     Dosage: 600 MG, UNK
     Dates: start: 20110309
  8. LOPERAMIDE HCL [Concomitant]
     Dosage: UNK UKN, UNK
     Dates: start: 20110309
  9. SULPIRIDE [Concomitant]
     Indication: DIZZINESS
     Dosage: 3X0.5
     Route: 048
     Dates: start: 20061207
  10. REPAGLINIDE [Concomitant]
     Dosage: UNK UKN, UNK
     Dates: start: 20080201
  11. CHOLESTYRAMINE [Concomitant]
     Dosage: UNK UKN, UNK
     Dates: start: 20100101
  12. CELEBREX [Concomitant]
     Indication: BACK PAIN
     Dosage: UNK UKN, UNK
     Dates: start: 20040923
  13. BIOTIN [Concomitant]
     Dosage: 5/D
     Dates: start: 20080101
  14. GABAPENTIN [Concomitant]
     Indication: PARAESTHESIA
     Dosage: 1500 MG
     Route: 048
     Dates: start: 20060425
  15. ARLEVERT [Concomitant]
     Indication: DIZZINESS
     Dosage: 2X1
     Route: 048
     Dates: start: 20110803
  16. CELEBREX [Concomitant]
     Dosage: 200 MG
     Dates: start: 20111001

REACTIONS (3)
  - ABDOMINAL PAIN [None]
  - NAUSEA [None]
  - DIARRHOEA [None]
